FAERS Safety Report 5816985-2 (Version None)
Quarter: 2008Q3

REPORT INFORMATION
  Report Type: 
  Country: None (occurrence: None)
  Receive Date: 20080722
  Receipt Date: 20080711
  Transmission Date: 20090109
  Serious: Yes (Other)
  Sender: FDA-Public Use
  Company Number: US-JNJFOC-20080703554

PATIENT
  Sex: Female
  Weight: 47.63 kg

DRUGS (2)
  1. IMODIUM A-D [Suspect]
  2. IMODIUM A-D [Suspect]
     Indication: DIARRHOEA

REACTIONS (1)
  - LOSS OF CONSCIOUSNESS [None]
